FAERS Safety Report 7769000-8 (Version None)
Quarter: 2011Q3

REPORT INFORMATION
  Report Type: 
  Country: None (occurrence: None)
  Receive Date: 20110922
  Receipt Date: 20101223
  Transmission Date: 20111222
  Serious: No
  Sender: FDA-Public Use
  Company Number: KH-ASTRAZENECA-2010SE60677

PATIENT
  Age: 18 Year
  Sex: Female
  Weight: 59 kg

DRUGS (4)
  1. WELLBUTRIN [Concomitant]
  2. LAMICTAL [Concomitant]
  3. SEROQUEL [Suspect]
     Indication: BIPOLAR DISORDER
     Dosage: THREE TIMES A DAY
     Route: 048
     Dates: start: 20100201
  4. VYVANSE [Concomitant]

REACTIONS (2)
  - GLYCOSYLATED HAEMOGLOBIN INCREASED [None]
  - BLOOD GLUCOSE INCREASED [None]
